FAERS Safety Report 6254466-5 (Version None)
Quarter: 2009Q3

REPORT INFORMATION
  Report Type: 
  Country: None (occurrence: None)
  Receive Date: 20090702
  Receipt Date: 20090629
  Transmission Date: 20100115
  Serious: No
  Sender: FDA-Public Use
  Company Number: US-B.I. PHARMACEUTICALS,INC./RIDGEFIELD-2009-BP-07815BP

PATIENT
  Age: 19 Year
  Sex: Female

DRUGS (4)
  1. CATAPRES-TTS-1 [Suspect]
     Indication: COMPLEX REGIONAL PAIN SYNDROME
     Dosage: 0.1 MG
     Route: 061
     Dates: start: 20090525
  2. CYMBALTA [Concomitant]
  3. NEURONTIN [Concomitant]
  4. ESTROSTEP [Concomitant]

REACTIONS (3)
  - APPLICATION SITE IRRITATION [None]
  - APPLICATION SITE PRURITUS [None]
  - APPLICATION SITE VESICLES [None]
